FAERS Safety Report 10466739 (Version 1)
Quarter: 2014Q3

REPORT INFORMATION
  Report Type: Spontaneous
  Country: CA (occurrence: CA)
  Receive Date: 20140922
  Receipt Date: 20140922
  Transmission Date: 20150326
  Serious: Yes (Hospitalization)
  Sender: FDA-Public Use
  Company Number: 2014SP002968

PATIENT
  Sex: Male

DRUGS (3)
  1. INSOMNIA                           /01995401/ [Concomitant]
     Indication: INSOMNIA
  2. LATUDA [Suspect]
     Active Substance: LURASIDONE HYDROCHLORIDE
     Indication: BIPOLAR I DISORDER
     Route: 048
     Dates: start: 20140825
  3. LATUDA [Suspect]
     Active Substance: LURASIDONE HYDROCHLORIDE
     Indication: BIPOLAR I DISORDER
     Route: 048
     Dates: start: 201407, end: 20140825

REACTIONS (4)
  - Aggression [Unknown]
  - Off label use [None]
  - Psychotic disorder [Unknown]
  - Headache [Unknown]

NARRATIVE: CASE EVENT DATE: 2014
